FAERS Safety Report 21112683 (Version 1)
Quarter: 2022Q3

REPORT INFORMATION
  Report Type: Report from Study
  Country: US (occurrence: US)
  Receive Date: 20220721
  Receipt Date: 20220721
  Transmission Date: 20221026
  Serious: Yes (Other)
  Sender: FDA-Public Use
  Company Number: US-BRISTOL-MYERS SQUIBB COMPANY-2022-072259

PATIENT
  Age: 58 Year
  Sex: Male
  Weight: 85.68 kg

DRUGS (1)
  1. POMALYST [Suspect]
     Active Substance: POMALIDOMIDE
     Indication: Plasma cell myeloma
     Dosage: ON DAYS 1-21, 28 CYCLE
     Route: 048
     Dates: start: 202206

REACTIONS (1)
  - Arthropod bite [Unknown]
